FAERS Safety Report 24676666 (Version 1)
Quarter: 2024Q4

REPORT INFORMATION
  Report Type: Report from Study
  Country: US (occurrence: US)
  Receive Date: 20241128
  Receipt Date: 20241128
  Transmission Date: 20250114
  Serious: Yes (Other)
  Sender: ABBVIE
  Company Number: US-ABBVIE-6022172

PATIENT
  Age: 68 Year
  Sex: Female

DRUGS (1)
  1. VENCLEXTA [Suspect]
     Active Substance: VENETOCLAX
     Indication: Acute myeloid leukaemia
     Route: 048

REACTIONS (7)
  - Breast cancer [Unknown]
  - Off label use [Unknown]
  - Hypertension [Unknown]
  - Diabetes mellitus [Unknown]
  - Sleep apnoea syndrome [Unknown]
  - Blood cholesterol abnormal [Unknown]
  - Neuropathy peripheral [Unknown]
